FAERS Safety Report 5137655-2 (Version None)
Quarter: 2006Q4

REPORT INFORMATION
  Report Type: 
  Country: None (occurrence: None)
  Receive Date: 20061030
  Receipt Date: 20051212
  Transmission Date: 20070319
  Serious: No
  Sender: FDA-Public Use
  Company Number: US-GLAXOSMITHKLINE-A0585484A

PATIENT
  Age: 37 Year
  Sex: Male

DRUGS (1)
  1. ADVAIR HFA [Suspect]
     Indication: RESPIRATORY TRACT CONGESTION
     Dosage: 1PUFF AT NIGHT
     Route: 055

REACTIONS (4)
  - HEART RATE INCREASED [None]
  - NERVOUSNESS [None]
  - NIGHT SWEATS [None]
  - RESPIRATORY TRACT CONGESTION [None]
